FAERS Safety Report 6545681-1 (Version None)
Quarter: 2010Q1

REPORT INFORMATION
  Report Type: 
  Country: None (occurrence: None)
  Receive Date: 20100121
  Receipt Date: 20100108
  Transmission Date: 20100710
  Serious: Yes (Other)
  Sender: FDA-Public Use
  Company Number: US-WATSON-2010-00532

PATIENT
  Age: 52 Year
  Sex: Male

DRUGS (2)
  1. DILTIA XT (WATSON LABORATORIES) [Suspect]
     Indication: ANGINA PECTORIS
     Dosage: 180 MG, DAILY
  2. METOPROLOL (WATSON LABORATORIES) [Suspect]
     Indication: DRUG USE FOR UNKNOWN INDICATION
     Dosage: UNK

REACTIONS (3)
  - ANGIOEDEMA [None]
  - FACE OEDEMA [None]
  - RASH MACULO-PAPULAR [None]
